FAERS Safety Report 7701998-6 (Version None)
Quarter: 2011Q3

REPORT INFORMATION
  Report Type: 
  Country: None (occurrence: None)
  Receive Date: 20110822
  Receipt Date: 20110819
  Transmission Date: 20111222
  Serious: Yes (Death)
  Sender: FDA-Public Use
  Company Number: PHHY2011NL60316

PATIENT
  Sex: Male

DRUGS (5)
  1. CRESTOR [Concomitant]
  2. ASCAL [Concomitant]
  3. DOCETAXEL [Concomitant]
  4. ZOMETA [Suspect]
     Indication: PROSTATE CANCER METASTATIC
     Dosage: 4 MG, UNK
     Dates: start: 20100904
  5. ZOMETA [Suspect]
     Dates: start: 20110211

REACTIONS (2)
  - NEOPLASM MALIGNANT [None]
  - NEOPLASM PROGRESSION [None]
